FAERS Safety Report 19910026 (Version 3)
Quarter: 2022Q1

REPORT INFORMATION
  Report Type: Report from Study
  Country: US (occurrence: US)
  Receive Date: 20211003
  Receipt Date: 20220131
  Transmission Date: 20220423
  Serious: No
  Sender: FDA-Public Use
  Company Number: US-NOVARTISTESTPH-NVSC2021US222694

PATIENT
  Sex: Female

DRUGS (2)
  1. ENTRESTO [Suspect]
     Active Substance: SACUBITRIL\VALSARTAN
     Indication: Cardiac failure chronic
     Dosage: 0.5 DF, BID (HALF TABLET)
     Route: 065
  2. ENTRESTO [Suspect]
     Active Substance: SACUBITRIL\VALSARTAN
     Dosage: UNK (24/26MG)
     Route: 065

REACTIONS (7)
  - Fatigue [Unknown]
  - Hypotension [Unknown]
  - Dizziness [Unknown]
  - Wrong technique in product usage process [Unknown]
  - Cardiac disorder [Unknown]
  - Peripheral coldness [Unknown]
  - Drug ineffective [Unknown]
